FAERS Safety Report 5878974-1 (Version None)
Quarter: 2008Q3

REPORT INFORMATION
  Report Type: 
  Country: None (occurrence: None)
  Receive Date: 20080912
  Receipt Date: 20080910
  Transmission Date: 20090109
  Serious: Yes (Death, Hospitalization)
  Sender: FDA-Public Use
  Company Number: US-BRISTOL-MYERS SQUIBB COMPANY-14206981

PATIENT
  Age: 80 Year
  Sex: Male
  Weight: 90 kg

DRUGS (5)
  1. COUMADIN [Suspect]
     Indication: DEEP VEIN THROMBOSIS
     Dosage: 1 DOSAGE FORM = 2-3 MG.
     Route: 048
     Dates: start: 20080101, end: 20080508
  2. LASIX [Suspect]
     Indication: OEDEMA
     Dosage: 20 MG 1/1/DAY PO 21-APR-2008 TO 05-MAY-2008.
     Route: 048
     Dates: start: 20080506, end: 20080508
  3. GLIMEPIRIDE [Concomitant]
     Indication: HYPERGLYCAEMIA
     Dosage: 2003-STOPPED
     Route: 048
     Dates: start: 20030101
  4. LOVASTATIN [Concomitant]
     Indication: BLOOD CHOLESTEROL INCREASED
     Dosage: 2004-STOPPED
     Route: 048
     Dates: start: 20040101
  5. ACETYLSALICYLIC ACID SRT [Concomitant]
     Indication: PROPHYLAXIS
     Route: 048
     Dates: start: 20040101, end: 20080508

REACTIONS (4)
  - DEHYDRATION [None]
  - GASTROINTESTINAL HAEMORRHAGE [None]
  - HYPERCOAGULATION [None]
  - MALIGNANT MELANOMA [None]
